FAERS Safety Report 21643789 (Version 1)
Quarter: 2022Q4

REPORT INFORMATION
  Report Type: Spontaneous
  Country: TR (occurrence: TR)
  Receive Date: 20221125
  Receipt Date: 20221125
  Transmission Date: 20230112
  Serious: Yes (Other)
  Sender: FDA-Public Use
  Company Number: TR-PFIZER INC-PV202200108100

PATIENT
  Age: 17 Year
  Sex: Male

DRUGS (4)
  1. BEVACIZUMAB [Suspect]
     Active Substance: BEVACIZUMAB
     Dosage: 15 MG/KG, EVERY 3 WEEKS
  2. VINCRISTINE [Concomitant]
     Active Substance: VINCRISTINE
     Dosage: EVERY 3 WEEKS
  3. IRINOTECAN [Concomitant]
     Active Substance: IRINOTECAN
     Dosage: EVERY 3 WEEKS
  4. TEMOZOLOMIDE [Concomitant]
     Active Substance: TEMOZOLOMIDE
     Dosage: EVERY 3 WEEKS

REACTIONS (5)
  - Proteinuria [Unknown]
  - Acute kidney injury [Unknown]
  - Thrombotic microangiopathy [Unknown]
  - Renal impairment [Unknown]
  - Off label use [Unknown]
